FAERS Safety Report 8480672 (Version 3)
Quarter: 2013Q2

REPORT INFORMATION
  Report Type: Spontaneous
  Country: US (occurrence: US)
  Receive Date: 20120328
  Receipt Date: 20130531
  Transmission Date: 20140414
  Serious: Yes (Other)
  Sender: FDA-Public Use
  Company Number: US-GILEAD-2012-0052603

PATIENT
  Age: 36 Year
  Sex: Male

DRUGS (3)
  1. ATRIPLA [Suspect]
     Indication: HIV INFECTION
     Dosage: 1 DF, QD
     Route: 048
     Dates: start: 2007, end: 20120316
  2. ATRIPLA [Suspect]
     Dosage: 1 DF, QD
     Route: 048
     Dates: start: 20120317, end: 20120318
  3. ATRIPLA [Suspect]
     Dosage: 1 DF, QD
     Route: 048
     Dates: start: 20120319

REACTIONS (7)
  - Motor dysfunction [Recovering/Resolving]
  - Hypoaesthesia [Recovering/Resolving]
  - Palpitations [Recovering/Resolving]
  - Paraesthesia [Recovering/Resolving]
  - Disorientation [Recovering/Resolving]
  - Heart rate irregular [Recovering/Resolving]
  - Insomnia [Recovering/Resolving]
